FAERS Safety Report 10018969 (Version 6)
Quarter: 2015Q2

REPORT INFORMATION
  Report Type: Report from Study
  Country: ZA (occurrence: ZA)
  Receive Date: 20140318
  Receipt Date: 20150506
  Transmission Date: 20150821
  Serious: Yes (Hospitalization)
  Sender: FDA-Public Use
  Company Number: ZA-GLAXOSMITHKLINE-B0800408D

PATIENT
  Age: 74 Year
  Sex: Male

DRUGS (29)
  1. GAVISCON [Concomitant]
     Active Substance: ALUMINUM HYDROXIDE\MAGNESIUM CARBONATE
     Indication: DYSPEPSIA
     Dosage: 10 ML, PRN
     Route: 048
     Dates: start: 20130109, end: 20140808
  2. ALTOSEC [Concomitant]
     Active Substance: OMEPRAZOLE
     Indication: GASTROOESOPHAGEAL REFLUX DISEASE
     Dosage: 20 MG, OD
     Route: 048
     Dates: start: 201012, end: 20140808
  3. FLUTICASONE FUROATE [Suspect]
     Active Substance: FLUTICASONE FUROATE
     Indication: CHRONIC OBSTRUCTIVE PULMONARY DISEASE
     Dosage: 100 UG, QD
     Route: 055
     Dates: start: 20111110
  4. DISPRIN [Concomitant]
     Active Substance: ASPIRIN
     Indication: OROPHARYNGEAL PAIN
  5. CARDICOR [Concomitant]
     Active Substance: BISOPROLOL
     Indication: MYOCARDIAL ISCHAEMIA
     Dosage: 2.5 MG, OD
     Route: 048
     Dates: start: 20131011, end: 20140808
  6. ALTOSEC [Concomitant]
     Active Substance: OMEPRAZOLE
     Indication: GASTROOESOPHAGEAL REFLUX DISEASE
  7. AMOXICILLIN TRIHYDRATE [Concomitant]
     Active Substance: AMOXICILLIN
     Indication: OROPHARYNGEAL PAIN
     Dosage: 1000 MG, BID
     Route: 048
     Dates: start: 20140117, end: 20140131
  8. LASIX [Concomitant]
     Active Substance: FUROSEMIDE
     Indication: CARDIAC FAILURE
     Dosage: 80 MG, BID
     Route: 048
     Dates: start: 20131113, end: 20140307
  9. SPIRACTIN [Concomitant]
     Active Substance: SPIRONOLACTONE
     Indication: CARDIAC FAILURE
     Dosage: 12.5 MG, OD
     Route: 048
     Dates: start: 20131113, end: 20140808
  10. RANMOXY [Concomitant]
     Indication: OROPHARYNGEAL PAIN
     Dosage: 500 MG, BID
     Route: 048
     Dates: start: 20140227, end: 20140306
  11. DISPRIN [Concomitant]
     Active Substance: ASPIRIN
     Indication: OROPHARYNGEAL PAIN
     Dosage: 300 MG, BID
     Route: 048
     Dates: start: 1993, end: 20140808
  12. LASIX [Concomitant]
     Active Substance: FUROSEMIDE
     Indication: CARDIAC FAILURE
  13. SIMVASTATIN ARROW [Concomitant]
     Active Substance: SIMVASTATIN
     Indication: HYPERCHOLESTEROLAEMIA
     Dosage: 20 MG, OD
     Route: 048
     Dates: start: 1993, end: 20140808
  14. COMBIVENT [Concomitant]
     Active Substance: ALBUTEROL SULFATE\IPRATROPIUM BROMIDE
     Indication: CHRONIC OBSTRUCTIVE PULMONARY DISEASE
     Dosage: 2 PUFF, PRN
     Route: 055
     Dates: start: 201006
  15. AMOXICILLIN/CLAVULANIC ACID [Concomitant]
     Active Substance: AMOXICILLIN\CLAVULANIC ACID
     Indication: OROPHARYNGEAL PAIN
     Dosage: 1000 MG, BID
     Route: 048
     Dates: start: 20140227, end: 20140306
  16. MYMOX [Concomitant]
     Indication: OROPHARYNGEAL PAIN
     Dosage: 500 MG, BID
     Route: 048
     Dates: start: 20140117, end: 20140131
  17. SLOW K [Concomitant]
     Active Substance: POTASSIUM CHLORIDE
     Indication: CARDIAC FAILURE
     Dosage: 600 MG, BID
     Route: 048
     Dates: start: 20131117, end: 20140307
  18. DISPRIN [Concomitant]
     Active Substance: ASPIRIN
     Indication: OROPHARYNGEAL PAIN
  19. OMEPRAZOLE. [Concomitant]
     Active Substance: OMEPRAZOLE
     Indication: DYSPEPSIA
  20. RANMOXY [Concomitant]
     Indication: OROPHARYNGEAL PAIN
  21. CARDICOR [Concomitant]
     Active Substance: BISOPROLOL
     Indication: MYOCARDIAL ISCHAEMIA
  22. SLOW K [Concomitant]
     Active Substance: POTASSIUM CHLORIDE
     Indication: CARDIAC FAILURE
  23. GAVISCON [Concomitant]
     Active Substance: ALUMINUM HYDROXIDE\MAGNESIUM CARBONATE
     Indication: DYSPEPSIA
  24. WARFARIN [Concomitant]
     Active Substance: WARFARIN
     Indication: PULMONARY EMBOLISM
     Dosage: 3 MG, OD
     Route: 048
     Dates: start: 20131117, end: 20140808
  25. SPIRACTIN [Concomitant]
     Active Substance: SPIRONOLACTONE
     Indication: CARDIAC FAILURE
  26. OMEPRAZOLE. [Concomitant]
     Active Substance: OMEPRAZOLE
     Indication: DYSPEPSIA
     Dosage: 20 MG, OD
     Route: 048
     Dates: start: 20130922
  27. PURICOS [Concomitant]
     Active Substance: ALLOPURINOL
     Indication: GOUT
     Dosage: 300 MG, OD
     Route: 048
     Dates: start: 2007, end: 20140808
  28. PREXUM [Concomitant]
     Active Substance: PERINDOPRIL ERBUMINE
     Indication: HYPERTENSION
     Dosage: 8 MG, OD
     Route: 048
     Dates: start: 201101, end: 20140307
  29. AMOXICILLIN TRIHYDRATE [Concomitant]
     Active Substance: AMOXICILLIN
     Indication: OROPHARYNGEAL PAIN

REACTIONS (1)
  - Bronchitis [Recovered/Resolved]

NARRATIVE: CASE EVENT DATE: 20140301
